FAERS Safety Report 20888081 (Version 1)
Quarter: 2022Q2

REPORT INFORMATION
  Report Type: Spontaneous
  Country: US (occurrence: US)
  Receive Date: 20220529
  Receipt Date: 20220529
  Transmission Date: 20220720
  Serious: Yes (Other)
  Sender: FDA-Public Use
  Company Number: US-drreddys-LIT/USA/22/0150399

PATIENT
  Age: 73 Year
  Sex: Male

DRUGS (3)
  1. BORTEZOMIB [Suspect]
     Active Substance: BORTEZOMIB
     Indication: Plasma cell myeloma
     Dosage: FOUR CYCLES OF BORTEZOMIB (2.3 MG/DOSE; 28-DAY CYCLE; ONE DOSE ON DAY 1,8,15)
     Route: 058
  2. LENALIDOMIDE [Suspect]
     Active Substance: LENALIDOMIDE
     Indication: Plasma cell myeloma
     Dosage: (25 MG/DOSE; 28-DAY CYCLE; ONE DOSE ON DAY 1,21)
  3. DEXAMETHASONE SODIUM PHOSPHATE [Suspect]
     Active Substance: DEXAMETHASONE SODIUM PHOSPHATE
     Indication: Plasma cell myeloma
     Dosage: 40 MG/DOSE; 28-DAY CYCLE; ONE DOSE ON DAY 1,8,15,22

REACTIONS (2)
  - Thrombotic microangiopathy [Recovered/Resolved]
  - Renal impairment [Recovered/Resolved]
